FAERS Safety Report 4951733-X (Version None)
Quarter: 2006Q1

REPORT INFORMATION
  Report Type: 
  Country: None (occurrence: None)
  Receive Date: 20060323
  Receipt Date: 20050711
  Transmission Date: 20060701
  Serious: Yes (Disabling)
  Sender: FDA-Public Use
  Company Number: JP-GLAXOSMITHKLINE-B0388226A

PATIENT
  Age: 38 Year
  Sex: Male
  Weight: 82 kg

DRUGS (3)
  1. PAXIL [Suspect]
     Indication: OBSESSIVE-COMPULSIVE DISORDER
     Route: 048
  2. DOGMATYL [Concomitant]
     Indication: DEPRESSION
     Dosage: 300MG PER DAY
     Route: 048
     Dates: start: 20031031
  3. TRYPTANOL [Concomitant]
     Indication: DEPRESSION
     Dosage: 25MG PER DAY
     Route: 048
     Dates: start: 20050729

REACTIONS (6)
  - AGGRESSION [None]
  - EXCITABILITY [None]
  - HYPOMANIA [None]
  - IMPULSIVE BEHAVIOUR [None]
  - OBSESSIVE-COMPULSIVE DISORDER [None]
  - RESTLESSNESS [None]
